FAERS Safety Report 6710726-2 (Version None)
Quarter: 2010Q2

REPORT INFORMATION
  Report Type: 
  Country: None (occurrence: None)
  Receive Date: 20100504
  Receipt Date: 20100504
  Transmission Date: 20101027
  Serious: Yes (Other)
  Sender: FDA-Public Use
  Company Number: None

PATIENT
  Age: 59 Year
  Sex: Female
  Weight: 121.1104 kg

DRUGS (1)
  1. AMLODIPINE [Suspect]
     Dosage: 5 MG PO QD 10 MG PO QD
     Route: 048

REACTIONS (4)
  - HEADACHE [None]
  - NAUSEA [None]
  - PRODUCT SUBSTITUTION ISSUE [None]
  - RASH [None]
